FAERS Safety Report 21625333 (Version 2)
Quarter: 2022Q4

REPORT INFORMATION
  Report Type: Spontaneous
  Country: US (occurrence: US)
  Receive Date: 20221122
  Receipt Date: 20221212
  Transmission Date: 20230112
  Serious: Yes (Hospitalization, Other)
  Sender: FDA-Public Use
  Company Number: US-Vifor (International) Inc.-VIT-2022-07990

PATIENT
  Age: 65 Year
  Sex: Male
  Weight: 80.8 kg

DRUGS (2)
  1. MIRCERA [Suspect]
     Active Substance: METHOXY POLYETHYLENE GLYCOL-EPOETIN BETA
     Indication: Anaemia
     Dosage: FIRST DOSE
     Dates: start: 20221028, end: 20221028
  2. MIRCERA [Suspect]
     Active Substance: METHOXY POLYETHYLENE GLYCOL-EPOETIN BETA
     Dosage: SECOND DOSE
     Route: 042
     Dates: start: 20221114, end: 20221114

REACTIONS (9)
  - Cardiac arrest [Recovered/Resolved]
  - Musculoskeletal pain [Recovered/Resolved]
  - Haemoglobin decreased [Recovered/Resolved]
  - Drug hypersensitivity [Recovered/Resolved]
  - Dyspnoea [Recovered/Resolved]
  - Orthopnoea [Recovered/Resolved]
  - Blood pressure abnormal [Recovered/Resolved]
  - Heart rate abnormal [Recovered/Resolved]
  - Oxygen saturation decreased [Recovered/Resolved]

NARRATIVE: CASE EVENT DATE: 20221001
